FAERS Safety Report 6538566-8 (Version None)
Quarter: 2010Q1

REPORT INFORMATION
  Report Type: 
  Country: None (occurrence: None)
  Receive Date: 20100113
  Receipt Date: 20100113
  Transmission Date: 20100710
  Serious: Yes (Death)
  Sender: FDA-Public Use
  Company Number: None

PATIENT
  Age: 21 Year
  Sex: Male

DRUGS (1)
  1. SUCCINYLCHOLINE CHLORIDE [Suspect]
     Indication: ENDOTRACHEAL INTUBATION
     Dosage: 80MG
     Dates: start: 20091027, end: 20091027

REACTIONS (2)
  - PULSE ABSENT [None]
  - VENTRICULAR TACHYCARDIA [None]
